FAERS Safety Report 9382254 (Version 3)
Quarter: 2013Q4

REPORT INFORMATION
  Report Type: Spontaneous
  Country: GB (occurrence: GB)
  Receive Date: 20130703
  Receipt Date: 20131211
  Transmission Date: 20140711
  Serious: Yes (Other)
  Sender: FDA-Public Use
  Company Number: GB-JNJFOC-20130618388

PATIENT
  Age: 48 Year
  Sex: Male
  Weight: 113 kg

DRUGS (13)
  1. STELARA [Suspect]
     Indication: PSORIATIC ARTHROPATHY
     Dosage: 6 DOSES IN 12 INJECTIONS
     Route: 058
     Dates: start: 20120903
  2. STELARA [Suspect]
     Indication: PSORIASIS
     Dosage: 6 DOSES IN 12 INJECTIONS
     Route: 058
     Dates: start: 20120903
  3. PEPPERMINT OIL [Concomitant]
     Indication: GASTROINTESTINAL DISORDER
     Route: 048
     Dates: start: 2004
  4. DICLOFENAC [Concomitant]
     Indication: RHEUMATOID ARTHRITIS
     Route: 048
     Dates: start: 1993
  5. LANSOPRAZOLE [Concomitant]
     Indication: GASTROINTESTINAL DISORDER
     Route: 048
     Dates: start: 2004
  6. METFORMIN [Concomitant]
     Indication: DIABETES MELLITUS
     Dosage: 500 MG X 2
     Route: 048
     Dates: start: 2004
  7. ROSUVASTATIN [Concomitant]
     Indication: HYPERLIPIDAEMIA
     Route: 048
     Dates: start: 2004
  8. SITAGLIPTIN [Concomitant]
     Indication: HYPERLIPIDAEMIA
     Route: 048
     Dates: start: 2004
  9. GLIMEPIRIDE [Concomitant]
     Indication: DIABETES MELLITUS
     Route: 048
     Dates: start: 2004
  10. GLIMEPIRIDE [Concomitant]
     Indication: DIABETES MELLITUS
     Route: 048
  11. TRAMADOL [Concomitant]
     Indication: RHEUMATOID ARTHRITIS
     Dosage: AS REQUIRED
     Route: 065
     Dates: start: 2004
  12. DIHYDROCODEINE [Concomitant]
     Indication: RHEUMATOID ARTHRITIS
     Dosage: AS REQUIRED
     Route: 065
     Dates: start: 2004
  13. GLYCERYL TRINITRATE [Concomitant]
     Route: 060
     Dates: start: 1996

REACTIONS (5)
  - Chest pain [Recovered/Resolved]
  - Diabetes mellitus inadequate control [Not Recovered/Not Resolved]
  - Palpitations [Recovered/Resolved]
  - Angina pectoris [Unknown]
  - Psoriasis [Recovered/Resolved]
